FAERS Safety Report 25460251 (Version 2)
Quarter: 2025Q2

REPORT INFORMATION
  Report Type: Spontaneous
  Country: US (occurrence: US)
  Receive Date: 20250620
  Receipt Date: 20250627
  Transmission Date: 20250717
  Serious: No
  Sender: SANOFI AVENTIS
  Company Number: US-SA-2025SA174238

PATIENT
  Age: 75 Year
  Sex: Female
  Weight: 64.09 kg

DRUGS (4)
  1. DUPIXENT [Suspect]
     Active Substance: DUPILUMAB
     Indication: Chronic obstructive pulmonary disease
     Dosage: 300 MG, QOW
     Route: 058
  2. UPTRAVI [Suspect]
     Active Substance: SELEXIPAG
  3. UPTRAVI [Suspect]
     Active Substance: SELEXIPAG
  4. SILDENAFIL CITRATE [Concomitant]
     Active Substance: SILDENAFIL CITRATE

REACTIONS (4)
  - Dust allergy [Unknown]
  - Seasonal allergy [Unknown]
  - Dizziness [Unknown]
  - Rehabilitation therapy [Unknown]
